FAERS Safety Report 6333122-9 (Version None)
Quarter: 2009Q3

REPORT INFORMATION
  Report Type: 
  Country: None (occurrence: None)
  Receive Date: 20090828
  Receipt Date: 20090617
  Transmission Date: 20100115
  Serious: Yes (Other)
  Sender: FDA-Public Use
  Company Number: BR-PFIZER INC-2009230073

PATIENT
  Age: 75 Year

DRUGS (1)
  1. NEURONTIN [Suspect]
     Indication: DYSMYELINATION
     Dosage: 300 MG, 2X/DAY
     Route: 048
     Dates: start: 20080101

REACTIONS (2)
  - ERECTILE DYSFUNCTION [None]
  - PROSTATE CANCER [None]
